FAERS Safety Report 6222157-2 (Version None)
Quarter: 2009Q2

REPORT INFORMATION
  Report Type: 
  Country: None (occurrence: None)
  Receive Date: 20090611
  Receipt Date: 20090604
  Transmission Date: 20091009
  Serious: Yes (Hospitalization, Other)
  Sender: FDA-Public Use
  Company Number: US-ROCHE-627724

PATIENT
  Sex: Female
  Weight: 63.5 kg

DRUGS (2)
  1. CAPECITABINE [Suspect]
     Indication: BREAST CANCER
     Dosage: TEMPORARILY DISCONTINUED
     Route: 048
     Dates: start: 20090222, end: 20090530
  2. TYKERB [Concomitant]

REACTIONS (4)
  - DIARRHOEA [None]
  - DRY SKIN [None]
  - INTESTINAL OBSTRUCTION [None]
  - LOCALISED INFECTION [None]
